FAERS Safety Report 25069329 (Version 1)
Quarter: 2025Q1

REPORT INFORMATION
  Report Type: Spontaneous
  Country: US (occurrence: US)
  Receive Date: 20250312
  Receipt Date: 20250312
  Transmission Date: 20250409
  Serious: No
  Sender: BAYER HEALTHCARE PHARMACEUTICALS INC.
  Company Number: US-BAYER-2025A032163

PATIENT
  Age: 55 Year
  Sex: Male

DRUGS (3)
  1. NUBEQA [Suspect]
     Active Substance: DAROLUTAMIDE
  2. ORGOVYX [Suspect]
     Active Substance: RELUGOLIX
     Indication: Prostate cancer
     Dosage: 120 MG, QD
     Route: 048
  3. ORGOVYX [Suspect]
     Active Substance: RELUGOLIX
     Indication: Prostate cancer
     Dates: start: 202412

REACTIONS (7)
  - Ageusia [Unknown]
  - Skin irritation [Unknown]
  - Headache [Unknown]
  - Bone pain [Unknown]
  - Fatigue [Unknown]
  - Hot flush [Unknown]
  - Radiotherapy [None]
